FAERS Safety Report 9395991 (Version 3)
Quarter: 2013Q3

REPORT INFORMATION
  Report Type: Spontaneous
  Country: US (occurrence: US)
  Receive Date: 20130711
  Receipt Date: 20130816
  Transmission Date: 20140515
  Serious: No
  Sender: FDA-Public Use
  Company Number: US-PFIZER INC-2013201895

PATIENT
  Age: 67 Year
  Sex: Female
  Weight: 53.97 kg

DRUGS (4)
  1. GEODON [Suspect]
     Indication: SCHIZOPHRENIA
     Dosage: 60 MG, 2X/DAY
     Route: 048
     Dates: start: 2012, end: 201306
  2. ZIPRASIDONE HYDROCHLORIDE [Suspect]
     Indication: SCHIZOPHRENIA
     Dosage: 60 MG, 2X/DAY
     Route: 048
     Dates: start: 201306, end: 201306
  3. ZIPRASIDONE HYDROCHLORIDE [Suspect]
     Dosage: 60 MG, 2X/DAY
     Route: 048
     Dates: start: 201306, end: 2013
  4. SERTRALINE [Concomitant]
     Dosage: UNK

REACTIONS (4)
  - Drug effect incomplete [Unknown]
  - Pain [Unknown]
  - Feeling abnormal [Unknown]
  - Product quality issue [Unknown]
